FAERS Safety Report 6632684-1 (Version None)
Quarter: 2010Q1

REPORT INFORMATION
  Report Type: 
  Country: None (occurrence: None)
  Receive Date: 20100312
  Receipt Date: 20100302
  Transmission Date: 20100710
  Serious: Yes (Other)
  Sender: FDA-Public Use
  Company Number: TR-ELI_LILLY_AND_COMPANY-TR201003001514

PATIENT
  Age: 34 Year
  Sex: Female

DRUGS (6)
  1. HUMULIN R [Suspect]
     Indication: GESTATIONAL DIABETES
     Dosage: 9 IU, EACH MORNING
     Route: 058
     Dates: start: 20100101
  2. HUMULIN R [Suspect]
     Dosage: 7 IU, OTHER
     Route: 058
     Dates: start: 20100101
  3. HUMULIN R [Suspect]
     Dosage: 5 IU, EACH EVENING
     Route: 058
     Dates: start: 20100101
  4. HUMULIN N [Suspect]
     Indication: GESTATIONAL DIABETES
     Dosage: 7 IU, EACH MORNING
     Route: 058
     Dates: start: 20100101
  5. HUMULIN N [Suspect]
     Dosage: 8 IU, DAILY (1/D)
     Route: 058
     Dates: start: 20100101
  6. ELEVIT [Concomitant]
     Indication: VITAMIN SUPPLEMENTATION
     Dosage: UNK, DAILY (1/D)
     Dates: start: 20090801

REACTIONS (3)
  - ABORTION THREATENED [None]
  - DRUG EXPOSURE DURING PREGNANCY [None]
  - OEDEMA PERIPHERAL [None]
